FAERS Safety Report 24041073 (Version 1)
Quarter: 2024Q3

REPORT INFORMATION
  Report Type: Spontaneous
  Country: CN (occurrence: CN)
  Receive Date: 20240702
  Receipt Date: 20240702
  Transmission Date: 20241017
  Serious: Yes (Other)
  Sender: LEADING PHARMA
  Company Number: CN-LEADINGPHARMA-CN-2024LEALIT00257

PATIENT
  Age: 64 Year
  Sex: Male

DRUGS (15)
  1. LEUCOVORIN CALCIUM [Suspect]
     Active Substance: LEUCOVORIN CALCIUM
     Indication: Adenocarcinoma of colon
     Dosage: FOR 8 CYCLES
     Route: 065
     Dates: start: 20220812, end: 20221217
  2. LEUCOVORIN CALCIUM [Suspect]
     Active Substance: LEUCOVORIN CALCIUM
     Indication: Oesophageal squamous cell carcinoma
  3. LEUCOVORIN CALCIUM [Suspect]
     Active Substance: LEUCOVORIN CALCIUM
     Indication: Leiomyoma
  4. FLUOROURACIL [Suspect]
     Active Substance: FLUOROURACIL
     Indication: Oesophageal squamous cell carcinoma
     Dosage: FOR 8 CYCLES
     Route: 065
     Dates: start: 20220812, end: 20221217
  5. FLUOROURACIL [Suspect]
     Active Substance: FLUOROURACIL
     Indication: Leiomyoma
  6. FLUOROURACIL [Suspect]
     Active Substance: FLUOROURACIL
     Indication: Adenocarcinoma of colon
  7. OXALIPLATIN [Suspect]
     Active Substance: OXALIPLATIN
     Indication: Oesophageal squamous cell carcinoma
     Dosage: FOR 8 CYCLES
     Route: 065
     Dates: start: 20220723
  8. OXALIPLATIN [Suspect]
     Active Substance: OXALIPLATIN
     Indication: Leiomyoma
     Dosage: FOR 8 CYCLES
     Route: 065
     Dates: start: 20220812, end: 20221217
  9. OXALIPLATIN [Suspect]
     Active Substance: OXALIPLATIN
     Indication: Adenocarcinoma of colon
  10. CETUXIMAB [Suspect]
     Active Substance: CETUXIMAB
     Indication: Oesophageal squamous cell carcinoma
     Dosage: FOR 8 CYCLES
     Route: 065
     Dates: start: 20220812, end: 20221217
  11. CETUXIMAB [Suspect]
     Active Substance: CETUXIMAB
     Indication: Leiomyoma
  12. CETUXIMAB [Suspect]
     Active Substance: CETUXIMAB
     Indication: Adenocarcinoma of colon
  13. CAPECITABINE [Suspect]
     Active Substance: CAPECITABINE
     Indication: Oesophageal squamous cell carcinoma
     Route: 065
     Dates: start: 20220723
  14. CAPECITABINE [Suspect]
     Active Substance: CAPECITABINE
     Indication: Leiomyoma
  15. CAPECITABINE [Suspect]
     Active Substance: CAPECITABINE
     Indication: Adenocarcinoma of colon

REACTIONS (4)
  - Palmar-plantar erythrodysaesthesia syndrome [Recovered/Resolved]
  - Myelosuppression [Recovered/Resolved]
  - Rash [Recovered/Resolved]
  - Product use in unapproved indication [Unknown]
